FAERS Safety Report 7280698-3 (Version None)
Quarter: 2011Q1

REPORT INFORMATION
  Report Type: 
  Country: None (occurrence: None)
  Receive Date: 20110208
  Receipt Date: 20110201
  Transmission Date: 20110831
  Serious: Yes (Disabling)
  Sender: FDA-Public Use
  Company Number: B0666756A

PATIENT
  Sex: Female
  Weight: 59 kg

DRUGS (10)
  1. SUNRYTHM [Concomitant]
     Indication: SUPRAVENTRICULAR TACHYCARDIA
     Route: 048
     Dates: start: 20080527
  2. DROTEBANOL [Concomitant]
     Indication: COUGH
     Route: 048
     Dates: start: 20080204
  3. MOBIC [Concomitant]
     Route: 048
     Dates: start: 20080529
  4. OXYCONTIN [Concomitant]
     Route: 048
     Dates: start: 20080511
  5. TAKEPRON [Concomitant]
     Indication: PROPHYLAXIS
     Route: 048
     Dates: start: 20080429, end: 20090609
  6. GASTER D [Concomitant]
     Indication: PROPHYLAXIS
     Route: 048
     Dates: start: 20080610
  7. ASTOMIN [Concomitant]
     Route: 048
     Dates: start: 20080128
  8. TALION [Concomitant]
     Indication: PRURITUS
     Route: 048
     Dates: start: 20080415
  9. TYKERB [Suspect]
     Indication: BREAST CANCER
     Route: 048
     Dates: start: 20100531
  10. XELODA [Concomitant]
     Dosage: 1800MG PER DAY
     Route: 048
     Dates: start: 20100531, end: 20100613

REACTIONS (2)
  - DIARRHOEA [None]
  - DEHYDRATION [None]
